FAERS Safety Report 10379553 (Version 1)
Quarter: 2014Q3

REPORT INFORMATION
  Report Type: Spontaneous
  Country: FR (occurrence: None)
  Receive Date: 20140808
  Receipt Date: 20140808
  Transmission Date: 20150326
  Serious: Yes (Other)
  Sender: FDA-Public Use
  Company Number: FR-20140267

PATIENT
  Age: 29 Year
  Sex: Female

DRUGS (2)
  1. DOTAREM [Suspect]
     Active Substance: GADOTERATE MEGLUMINE
     Indication: NUCLEAR MAGNETIC RESONANCE IMAGING ABDOMINAL
     Dosage: 1 DOSAGE FORMS (1 DOSAGE FORMS, 1 IN 1 D), INTRAVENOUS (NOT OTHERWISE SPECIFIED)??
     Route: 042
     Dates: start: 20140522, end: 20140522
  2. GLUCAGEN [Suspect]
     Active Substance: GLUCAGON HYDROCHLORIDE
     Indication: NUCLEAR MAGNETIC RESONANCE IMAGING ABDOMINAL
     Dosage: UNK (1 DOSAGE FORMS), INTRAVENOUS DRIP
     Route: 041
     Dates: start: 20140522, end: 20140522

REACTIONS (12)
  - Injection site extravasation [None]
  - Paraesthesia [None]
  - Localised oedema [None]
  - Neck pain [None]
  - Loss of consciousness [None]
  - Headache [None]
  - Vomiting [None]
  - Tongue biting [None]
  - Nausea [None]
  - Hot flush [None]
  - Malaise [None]
  - Injection site pain [None]

NARRATIVE: CASE EVENT DATE: 20140522
